FAERS Safety Report 4476020-8 (Version None)
Quarter: 2004Q4

REPORT INFORMATION
  Report Type: 
  Country: None (occurrence: None)
  Receive Date: 20041012
  Receipt Date: 20040927
  Transmission Date: 20050328
  Serious: Yes (Death, Other)
  Sender: FDA-Public Use
  Company Number: 2004070987

PATIENT
  Age: 29 Year

DRUGS (4)
  1. DOXEPIN HCL [Suspect]
     Indication: ILL-DEFINED DISORDER
     Dosage: UNK
     Route: 048
  2. ESCITALOPRAM (ESCITALOPRAM) [Suspect]
     Indication: ILL-DEFINED DISORDER
     Route: 048
  3. MIRTAZAPINE [Suspect]
     Indication: ILL-DEFINED DISORDER
     Route: 048
  4. ALL OTHER THERAPEUTIC PRODUCTS [Suspect]
     Indication: ILL-DEFINED DISORDER

REACTIONS (4)
  - CARDIAC ARREST [None]
  - COMPLETED SUICIDE [None]
  - MULTIPLE DRUG OVERDOSE INTENTIONAL [None]
  - RESPIRATORY ARREST [None]
